FAERS Safety Report 24860416 (Version 1)
Quarter: 2025Q1

REPORT INFORMATION
  Report Type: Spontaneous
  Country: US (occurrence: US)
  Receive Date: 20250120
  Receipt Date: 20250120
  Transmission Date: 20250409
  Serious: No
  Sender: STRIDES
  Company Number: US-STRIDES ARCOLAB LIMITED-2024SP014034

PATIENT
  Age: 17 Year
  Sex: Female

DRUGS (2)
  1. METHOTREXATE [Suspect]
     Active Substance: METHOTREXATE
     Indication: Keratoacanthoma
     Route: 026
  2. METHOTREXATE [Suspect]
     Active Substance: METHOTREXATE
     Indication: Bloch-Sulzberger syndrome

REACTIONS (2)
  - Injection site discomfort [Unknown]
  - Off label use [Unknown]
